FAERS Safety Report 4656222-8 (Version None)
Quarter: 2005Q2

REPORT INFORMATION
  Report Type: 
  Country: None (occurrence: None)
  Receive Date: 20050509
  Receipt Date: 20050303
  Transmission Date: 20051028
  Serious: No
  Sender: FDA-Public Use
  Company Number: US-GLAXOSMITHKLINE-A0548224A

PATIENT
  Age: 59 Year
  Sex: Female

DRUGS (9)
  1. AVANDAMET [Suspect]
     Route: 048
     Dates: start: 20050302
  2. FOSAMAX [Concomitant]
  3. REMICADE [Concomitant]
  4. METHOTREXATE [Concomitant]
  5. ADVICOR [Concomitant]
  6. PREDNISONE TAB [Concomitant]
  7. FOLIC ACID [Concomitant]
  8. AVAPRO [Concomitant]
  9. ASPIRIN [Concomitant]

REACTIONS (4)
  - DIPLOPIA [None]
  - FEELING COLD [None]
  - TREMOR [None]
  - VOMITING [None]
